FAERS Safety Report 5752678-8 (Version None)
Quarter: 2008Q2

REPORT INFORMATION
  Report Type: 
  Country: None (occurrence: None)
  Receive Date: 20080529
  Receipt Date: 20080415
  Transmission Date: 20081010
  Serious: No
  Sender: FDA-Public Use
  Company Number: US-BAYER-200811479BCC

PATIENT
  Age: 59 Year
  Sex: Female
  Weight: 73 kg

DRUGS (3)
  1. ALEVE [Suspect]
     Indication: OSTEOARTHRITIS
     Dosage: TOTAL DAILY DOSE: 880 MG  UNIT DOSE: 220 MG
     Route: 048
     Dates: start: 20080407, end: 20080414
  2. NEXIUM [Concomitant]
  3. SYNTHROID [Concomitant]

REACTIONS (3)
  - BLOOD PRESSURE INCREASED [None]
  - DIZZINESS [None]
  - FEELING ABNORMAL [None]
